FAERS Safety Report 4640453-7 (Version None)
Quarter: 2005Q2

REPORT INFORMATION
  Report Type: 
  Country: None (occurrence: None)
  Receive Date: 20050419
  Receipt Date: 20050406
  Transmission Date: 20051028
  Serious: Yes (Death, Hospitalization, Disabling)
  Sender: FDA-Public Use
  Company Number: 2002092668US

PATIENT
  Age: 71 Year
  Sex: Male

DRUGS (2)
  1. CAMPTOSAR [Suspect]
     Indication: NON-SMALL CELL LUNG CANCER
     Dosage: 50 MG/M2 (D1+D8, CYC 2, Q21 DAYS), INTRAVENOUS
     Route: 042
     Dates: start: 20011220, end: 20020110
  2. PACLITAXEL [Suspect]
     Indication: NON-SMALL CELL LUNG CANCER
     Dosage: 75 MG/M2 (D1+D8, CYC 2, Q21 DAYS), INTRAVENOUS
     Route: 042
     Dates: start: 20011220, end: 20020110

REACTIONS (9)
  - ANOREXIA [None]
  - ASTHENIA [None]
  - BLOOD ALBUMIN DECREASED [None]
  - BLOOD GLUCOSE INCREASED [None]
  - DEPRESSION [None]
  - GENERAL PHYSICAL HEALTH DETERIORATION [None]
  - INAPPROPRIATE ANTIDIURETIC HORMONE SECRETION [None]
  - PNEUMONIA [None]
  - RESPIRATORY FAILURE [None]
